FAERS Safety Report 19449669 (Version 2)
Quarter: 2021Q3

REPORT INFORMATION
  Report Type: Report from Study
  Country: BR (occurrence: BR)
  Receive Date: 20210622
  Receipt Date: 20210713
  Transmission Date: 20211014
  Serious: Yes (Other)
  Sender: FDA-Public Use
  Company Number: NVSC2021BR138862

PATIENT
  Age: 80 Year
  Sex: Female
  Weight: 48 kg

DRUGS (5)
  1. GALVUS MET [Suspect]
     Active Substance: METFORMIN HYDROCHLORIDE\VILDAGLIPTIN
     Dosage: 1 DF, BID
     Route: 048
  2. GALVUS MET [Suspect]
     Active Substance: METFORMIN HYDROCHLORIDE\VILDAGLIPTIN
     Indication: DIABETES MELLITUS
     Dosage: 1 DF
     Route: 065
  3. ABLOK PLUS [Concomitant]
     Active Substance: ATENOLOL\CHLORTHALIDONE
     Indication: HYPERTENSION
     Dosage: 1 DF, QD(MANY YEARS AGO)
     Route: 048
  4. OMEPRAZOLE. [Concomitant]
     Active Substance: OMEPRAZOLE
     Indication: GASTRITIS
     Dosage: 1 DF, QD(MANY YEARS AGO)
     Route: 048
  5. OMEGA 3 [Concomitant]
     Active Substance: OMEGA-3 FATTY ACIDS
     Indication: RHEUMATOID ARTHRITIS
     Dosage: 1 DF, QD(MANY YEARS AGO)
     Route: 048

REACTIONS (8)
  - Anxiety [Recovering/Resolving]
  - Blood glucose increased [Recovering/Resolving]
  - Tremor [Unknown]
  - Confusional state [Recovering/Resolving]
  - Aggression [Recovering/Resolving]
  - Diabetes mellitus [Unknown]
  - Nervousness [Not Recovered/Not Resolved]
  - Conversion disorder [Recovering/Resolving]

NARRATIVE: CASE EVENT DATE: 202104
